FAERS Safety Report 6579370-4 (Version None)
Quarter: 2010Q1

REPORT INFORMATION
  Report Type: 
  Country: None (occurrence: None)
  Receive Date: 20100212
  Receipt Date: 20100202
  Transmission Date: 20100710
  Serious: Yes (Other)
  Sender: FDA-Public Use
  Company Number: DE-ELI_LILLY_AND_COMPANY-DE201002000465

PATIENT
  Sex: Male

DRUGS (1)
  1. CYMBALTA [Suspect]
     Dosage: UNK, UNKNOWN
     Route: 048
     Dates: end: 20080101

REACTIONS (3)
  - AZOOSPERMIA [None]
  - INFERTILITY MALE [None]
  - SPERMATOZOA PROGRESSIVE MOTILITY ABNORMAL [None]
